FAERS Safety Report 5114622-6 (Version None)
Quarter: 2006Q3

REPORT INFORMATION
  Report Type: 
  Country: None (occurrence: None)
  Receive Date: 20060921
  Receipt Date: 20060911
  Transmission Date: 20061208
  Serious: Yes (Other)
  Sender: FDA-Public Use
  Company Number: CHPA2006US09205

PATIENT
  Age: 31 Year
  Sex: Male

DRUGS (1)
  1. EXCEDRIN (NCH) [Suspect]
     Indication: HANGOVER
     Dosage: 2 DF, QD, ORAL
     Route: 048

REACTIONS (2)
  - DRUG ABUSER [None]
  - OFF LABEL USE [None]
